FAERS Safety Report 21937295 (Version 1)
Quarter: 2023Q1

REPORT INFORMATION
  Report Type: Spontaneous
  Country: JP (occurrence: None)
  Receive Date: 20230201
  Receipt Date: 20230201
  Transmission Date: 20230417
  Serious: Yes (Hospitalization)
  Sender: FDA-Public Use
  Company Number: 2023A023323

PATIENT

DRUGS (3)
  1. LOKELMA [Suspect]
     Active Substance: SODIUM ZIRCONIUM CYCLOSILICATE
     Route: 048
  2. LOKELMA [Suspect]
     Active Substance: SODIUM ZIRCONIUM CYCLOSILICATE
     Dosage: NUMBER OF SEPARATE DOSAGES UNKNOWN
     Route: 048
  3. LOKELMA [Suspect]
     Active Substance: SODIUM ZIRCONIUM CYCLOSILICATE
     Dosage: NUMBER OF SEPARATE DOSAGES UNKNOWN
     Route: 048

REACTIONS (3)
  - Renal impairment [Unknown]
  - Drug ineffective [Unknown]
  - Off label use [Unknown]
